FAERS Safety Report 5004674-6 (Version None)
Quarter: 2006Q2

REPORT INFORMATION
  Report Type: 
  Country: None (occurrence: None)
  Receive Date: 20060517
  Receipt Date: 20051114
  Transmission Date: 20061013
  Serious: Yes (Hospitalization)
  Sender: FDA-Public Use
  Company Number: US-AMGEN-US157880

PATIENT
  Sex: Female

DRUGS (4)
  1. KINERET [Suspect]
     Indication: RHEUMATOID ARTHRITIS
     Route: 058
     Dates: start: 20040312, end: 20051107
  2. ENBREL [Suspect]
     Route: 058
     Dates: start: 20030201, end: 20031012
  3. ARAVA [Concomitant]
     Route: 065
     Dates: start: 20020201, end: 20031101
  4. PREDNISONE TAB [Concomitant]
     Indication: RHEUMATOID ARTHRITIS
     Route: 065
     Dates: start: 19950101

REACTIONS (4)
  - RESPIRATORY FAILURE [None]
  - RHEUMATOID LUNG [None]
  - RHEUMATOID VASCULITIS [None]
  - WEGENER'S GRANULOMATOSIS [None]
